FAERS Safety Report 19503883 (Version 1)
Quarter: 2021Q3

REPORT INFORMATION
  Report Type: Report from Study
  Country: MX (occurrence: MX)
  Receive Date: 20210707
  Receipt Date: 20210707
  Transmission Date: 20211014
  Serious: Yes (Other)
  Sender: FDA-Public Use
  Company Number: MX-INCYTE CORPORATION-2021IN005948

PATIENT

DRUGS (1)
  1. JAKAVI [Suspect]
     Active Substance: RUXOLITINIB
     Indication: MYELOFIBROSIS
     Dosage: 2 DF, Q12H (5 MG)
     Route: 048
     Dates: start: 2013

REACTIONS (4)
  - Splenic infarction [Recovered/Resolved]
  - Product availability issue [Unknown]
  - Splenitis [Recovered/Resolved]
  - Splenic haemorrhage [Unknown]
